FAERS Safety Report 15258131 (Version 1)
Quarter: 2018Q3

REPORT INFORMATION
  Report Type: Report from Study
  Country: None (occurrence: US)
  Receive Date: 20180809
  Receipt Date: 20180809
  Transmission Date: 20181010
  Serious: Yes (Hospitalization, Other)
  Sender: FDA-Public Use
  Company Number: US-ABBVIE-18K-163-2396489-00

PATIENT
  Age: 50 Year
  Sex: Female
  Weight: 102.15 kg

DRUGS (4)
  1. HUMIRA [Suspect]
     Active Substance: ADALIMUMAB
     Indication: CROHN^S DISEASE
     Route: 058
     Dates: end: 201805
  2. HUMIRA [Suspect]
     Active Substance: ADALIMUMAB
     Route: 058
     Dates: start: 201805
  3. CYCLOBENZAPRINE HYDROCHLORIDE. [Concomitant]
     Active Substance: CYCLOBENZAPRINE HYDROCHLORIDE
     Indication: MUSCLE SPASMS
  4. LACTULOSE. [Concomitant]
     Active Substance: LACTULOSE
     Indication: ABNORMAL FAECES

REACTIONS (7)
  - Crohn^s disease [Recovering/Resolving]
  - Spinal fracture [Recovering/Resolving]
  - Blood potassium decreased [Recovered/Resolved]
  - Back pain [Recovering/Resolving]
  - Haemoglobin decreased [Recovered/Resolved]
  - Gastrointestinal ulcer [Recovering/Resolving]
  - Gastric ulcer [Recovering/Resolving]

NARRATIVE: CASE EVENT DATE: 2018
